FAERS Safety Report 7002930-3 (Version None)
Quarter: 2010Q3

REPORT INFORMATION
  Report Type: 
  Country: None (occurrence: None)
  Receive Date: 20100916
  Receipt Date: 20100902
  Transmission Date: 20110219
  Serious: Yes (Other)
  Sender: FDA-Public Use
  Company Number: 2010PL000026

PATIENT
  Age: 71 Year
  Sex: Male

DRUGS (17)
  1. IMURAN [Suspect]
     Indication: IDIOPATHIC PULMONARY FIBROSIS
     Dosage: 50 MG;TID
     Dates: start: 20080321, end: 20100107
  2. INVESTIGATIONAL DRUG [Suspect]
     Indication: IDIOPATHIC PULMONARY FIBROSIS
     Dosage: 9 CAPS;QD
  3. COUMADIN [Concomitant]
  4. LOSARTAN POTASSIUM [Concomitant]
  5. FUROSEMIDE [Concomitant]
  6. METOLAZONE [Concomitant]
  7. METOPROLOL TARTRATE [Concomitant]
  8. GABAPENTIN [Concomitant]
  9. AMLODIPINE [Concomitant]
  10. POTASSIUM [Concomitant]
  11. BACTRIM [Concomitant]
  12. ATROVENT [Concomitant]
  13. ACETAMINOPHEN [Concomitant]
  14. ASPIRIN [Concomitant]
  15. DOCUSATE SODIUM [Concomitant]
  16. OMEPRAZOLE [Concomitant]
  17. SIMVASTATIN [Concomitant]

REACTIONS (10)
  - BALANITIS [None]
  - BLOOD AMYLASE DECREASED [None]
  - BLOOD BICARBONATE INCREASED [None]
  - BLOOD CHLORIDE DECREASED [None]
  - BLOOD GLUCOSE INCREASED [None]
  - BLOOD TRIGLYCERIDES INCREASED [None]
  - LYMPHOCYTE PERCENTAGE INCREASED [None]
  - NEUTROPHIL PERCENTAGE INCREASED [None]
  - PROSTATE CANCER [None]
  - URINARY BLADDER POLYP [None]
